FAERS Safety Report 4443846-6 (Version None)
Quarter: 2004Q3

REPORT INFORMATION
  Report Type: 
  Country: None (occurrence: None)
  Receive Date: 20040729
  Receipt Date: 20040303
  Transmission Date: 20050211
  Serious: Yes (Hospitalization)
  Sender: FDA-Public Use
  Company Number: US-JNJFOC-20040301331

PATIENT
  Sex: Female

DRUGS (2)
  1. RISPERDAL [Suspect]
     Dosage: 2 MG, 1 IN 1 DAY, ORAL
     Route: 048
  2. PROZAC [Concomitant]

REACTIONS (2)
  - EXTRAPYRAMIDAL DISORDER [None]
  - SUICIDAL IDEATION [None]
